FAERS Safety Report 24895707 (Version 1)
Quarter: 2025Q1

REPORT INFORMATION
  Report Type: Spontaneous
  Country: US (occurrence: US)
  Receive Date: 20250128
  Receipt Date: 20250128
  Transmission Date: 20250409
  Serious: No
  Sender: PFIZER
  Company Number: US-PFIZER INC-202500016229

PATIENT
  Age: 67 Year
  Sex: Male

DRUGS (2)
  1. TUKYSA [Suspect]
     Active Substance: TUCATINIB
     Indication: Colorectal cancer
  2. TUKYSA [Suspect]
     Active Substance: TUCATINIB
     Indication: Colon cancer

REACTIONS (1)
  - Product residue present [Unknown]
